FAERS Safety Report 20616181 (Version 3)
Quarter: 2022Q2

REPORT INFORMATION
  Report Type: Spontaneous
  Country: PT (occurrence: PT)
  Receive Date: 20220321
  Receipt Date: 20220408
  Transmission Date: 20220721
  Serious: Yes (Hospitalization)
  Sender: FDA-Public Use
  Company Number: PT-ELI_LILLY_AND_COMPANY-PT202203004591

PATIENT
  Age: 67 Year
  Sex: Female

DRUGS (16)
  1. HUMULIN N [Suspect]
     Active Substance: INSULIN HUMAN
     Indication: Product used for unknown indication
     Dosage: 16 INTERNATIONAL UNIT, EACH MORNING
     Route: 065
     Dates: start: 2009
  2. HUMULIN N [Suspect]
     Active Substance: INSULIN HUMAN
     Dosage: 14 INTERNATIONAL UNIT, EACH EVENING
     Route: 065
     Dates: start: 2009
  3. HUMULIN N [Suspect]
     Active Substance: INSULIN HUMAN
     Dosage: 14 INTERNATIONAL UNIT, EACH MORNING
     Route: 065
     Dates: start: 20220215
  4. TRULICITY [Suspect]
     Active Substance: DULAGLUTIDE
     Indication: Product used for unknown indication
     Dosage: 1.5 MG, WEEKLY (1/W)
     Route: 065
  5. TRULICITY [Suspect]
     Active Substance: DULAGLUTIDE
     Dosage: 1.5 MG, WEEKLY (1/W)
     Route: 065
  6. COVERAM [Concomitant]
     Active Substance: AMLODIPINE\PERINDOPRIL
     Indication: Product used for unknown indication
     Dosage: 1 DOSAGE FORM, EACH MORNING
  7. NEBIVOLOL [NEBIVOLOL HYDROCHLORIDE] [Concomitant]
     Indication: Product used for unknown indication
     Dosage: 5 MG, EACH MORNING
  8. RISIDON [Concomitant]
     Active Substance: METFORMIN HYDROCHLORIDE
     Indication: Product used for unknown indication
     Dosage: 1000 MG, EACH MORNING
  9. RISIDON [Concomitant]
     Active Substance: METFORMIN HYDROCHLORIDE
     Dosage: 1000 MG, DAILY AT DINNER
  10. JARDIANCE [Concomitant]
     Active Substance: EMPAGLIFLOZIN
     Indication: Diabetes mellitus
     Dosage: 10 MG, EACH MORNING
     Dates: start: 202202
  11. LASIX [Concomitant]
     Active Substance: FUROSEMIDE
     Indication: Product used for unknown indication
     Dosage: 1.5 DOSAGE FORM, EACH MORNING
  12. LASIX [Concomitant]
     Active Substance: FUROSEMIDE
     Dosage: 40 MG, DAILY AT LUNCH
  13. XARELTO [Concomitant]
     Active Substance: RIVAROXABAN
     Indication: Product used for unknown indication
     Dosage: 20 MG, DAILY AT LUNCH
  14. ALDACTONE [Concomitant]
     Active Substance: SPIRONOLACTONE
     Indication: Product used for unknown indication
     Dosage: 25 MG, DAILY AFTERNOON SNACK
  15. PERMADOZE [Concomitant]
     Indication: Product used for unknown indication
     Dosage: 1 MG, DAILY AFTERNOON SNACK
  16. MEXAZOLAM [Concomitant]
     Active Substance: MEXAZOLAM
     Indication: Product used for unknown indication
     Dosage: 1 MG, DAILY AT BEDTIME

REACTIONS (10)
  - Pneumonia [Unknown]
  - COVID-19 [Unknown]
  - Respiratory failure [Unknown]
  - Cardiac failure [Unknown]
  - Diabetes mellitus inadequate control [Recovering/Resolving]
  - Fluid retention [Recovering/Resolving]
  - Memory impairment [Unknown]
  - Confusional state [Unknown]
  - Back pain [Unknown]
  - Fatigue [Not Recovered/Not Resolved]

NARRATIVE: CASE EVENT DATE: 20190101
